FAERS Safety Report 19352264 (Version 1)
Quarter: 2021Q2

REPORT INFORMATION
  Report Type: Other
  Country: FR (occurrence: FR)
  Receive Date: 20210531
  Receipt Date: 20210531
  Transmission Date: 20210717
  Serious: Yes (Other)
  Sender: FDA-Public Use
  Company Number: FR-ROCHE-2835794

PATIENT

DRUGS (3)
  1. OCRELIZUMAB. [Suspect]
     Active Substance: OCRELIZUMAB
     Indication: MULTIPLE SCLEROSIS
     Dosage: 300MG  AS SINGLE DOSE LOADING
     Route: 042
  2. OCRELIZUMAB. [Suspect]
     Active Substance: OCRELIZUMAB
     Indication: PRIMARY PROGRESSIVE MULTIPLE SCLEROSIS
     Dosage: AS MAINTENANCE DOSE
     Route: 042
  3. OCRELIZUMAB. [Suspect]
     Active Substance: OCRELIZUMAB
     Indication: RELAPSING-REMITTING MULTIPLE SCLEROSIS

REACTIONS (9)
  - Injection site reaction [Unknown]
  - Urinary tract infection [Unknown]
  - Sensory disturbance [Unknown]
  - Fatigue [Unknown]
  - Headache [Unknown]
  - Pharyngitis [Unknown]
  - Neutropenia [Unknown]
  - Injection site pruritus [Unknown]
  - Oral herpes [Unknown]
